FAERS Safety Report 21196061 (Version 1)
Quarter: 2022Q3

REPORT INFORMATION
  Report Type: Spontaneous
  Country: US (occurrence: US)
  Receive Date: 20220810
  Receipt Date: 20220810
  Transmission Date: 20221027
  Serious: No
  Sender: FDA-Public Use
  Company Number: US-PFIZER INC-202201041544

PATIENT
  Sex: Female

DRUGS (2)
  1. PAXLOVID [Suspect]
     Active Substance: NIRMATRELVIR\RITONAVIR
     Indication: COVID-19 treatment
     Dosage: 1 DF (3 YESTERDAY MORNING AND 3 LAST NIGHT )
  2. ATIVAN [Suspect]
     Active Substance: LORAZEPAM
     Dosage: 5 MG (5 MILLIGRAMS IN THE MORNING )

REACTIONS (3)
  - Heart rate increased [Unknown]
  - Tremor [Unknown]
  - Sleep disorder [Unknown]
